FAERS Safety Report 4273100-7 (Version None)
Quarter: 2004Q1

REPORT INFORMATION
  Report Type: 
  Country: None (occurrence: None)
  Receive Date: 20040116
  Receipt Date: 20031217
  Transmission Date: 20041129
  Serious: Yes (Life-Threatening, Hospitalization)
  Sender: FDA-Public Use
  Company Number: CH-BRISTOL-MYERS SQUIBB COMPANY-12463089

PATIENT
  Age: 72 Year
  Sex: Female
  Weight: 55 kg

DRUGS (6)
  1. GLUCOPHAGE [Suspect]
     Indication: DIABETES MELLITUS
     Route: 048
     Dates: end: 20031215
  2. CITALOPRAM [Concomitant]
     Indication: DEPRESSION
     Route: 048
     Dates: start: 20031117, end: 20031215
  3. GERIAVIT [Concomitant]
     Dosage: DOSAGE FORM= TABLET
     Route: 048
     Dates: end: 20031215
  4. COAPROVEL TABS 300MG/12.5MG [Concomitant]
     Indication: ESSENTIAL HYPERTENSION
     Dosage: DOSAGE FORM= 300 MG/12.5MG
     Route: 048
     Dates: end: 20031215
  5. SORTIS [Concomitant]
     Indication: HYPERCHOLESTEROLAEMIA
     Route: 048
     Dates: end: 20031215
  6. PLAVIX [Concomitant]
     Indication: CEREBROVASCULAR DISORDER
     Route: 048

REACTIONS (16)
  - AGITATION [None]
  - BLOOD PRESSURE INCREASED [None]
  - BODY TEMPERATURE DECREASED [None]
  - COMA [None]
  - CORONARY ARTERY DISEASE [None]
  - DISORIENTATION [None]
  - DYSPNOEA [None]
  - HAEMODIALYSIS [None]
  - HEART RATE IRREGULAR [None]
  - LACTIC ACIDOSIS [None]
  - PNEUMONIA [None]
  - PULMONARY OEDEMA [None]
  - RENAL FAILURE [None]
  - RENAL TUBULAR NECROSIS [None]
  - RESPIRATORY RATE INCREASED [None]
  - VOMITING [None]
